FAERS Safety Report 8243602-7 (Version None)
Quarter: 2012Q1

REPORT INFORMATION
  Report Type: 
  Country: None (occurrence: None)
  Receive Date: 20120329
  Receipt Date: 20120323
  Transmission Date: 20120608
  Serious: Yes (Life-Threatening)
  Sender: FDA-Public Use
  Company Number: US-BAYER-2011-077993

PATIENT
  Age: 35 Year
  Sex: Female
  Weight: 100 kg

DRUGS (5)
  1. DROSPIRENONE AND ETHINYL ESTRADIOL [Suspect]
     Dosage: UNK
     Dates: start: 20060501, end: 20090925
  2. YASMIN [Suspect]
     Dosage: UNK
     Dates: start: 20060501, end: 20090925
  3. OXYBUTYNIN [Concomitant]
     Route: 048
  4. NEXIUM [Concomitant]
     Route: 048
  5. COPAXONE [Concomitant]
     Indication: MULTIPLE SCLEROSIS
     Route: 048

REACTIONS (10)
  - EMOTIONAL DISTRESS [None]
  - MENTAL DISORDER [None]
  - DEEP VEIN THROMBOSIS [None]
  - ANXIETY [None]
  - THROMBOSIS [None]
  - OEDEMA PERIPHERAL [None]
  - VEIN DISORDER [None]
  - PAIN IN EXTREMITY [None]
  - PAIN [None]
  - ANHEDONIA [None]
